FAERS Safety Report 25914207 (Version 2)
Quarter: 2025Q4

REPORT INFORMATION
  Report Type: Spontaneous
  Country: US (occurrence: US)
  Receive Date: 20251013
  Receipt Date: 20251106
  Transmission Date: 20260118
  Serious: Yes (Hospitalization, Other)
  Sender: ARDELYX
  Company Number: US-ARDELYX-2025ARDX006675

PATIENT
  Sex: Male

DRUGS (2)
  1. IBSRELA [Suspect]
     Active Substance: TENAPANOR HYDROCHLORIDE
     Indication: Irritable bowel syndrome
     Dosage: 50 MG, BID
     Route: 065
     Dates: start: 202508, end: 202508
  2. LACTULOSE [Concomitant]
     Active Substance: LACTULOSE
     Indication: Product used for unknown indication
     Dosage: UNK
     Route: 065

REACTIONS (9)
  - Creatinine renal clearance decreased [Unknown]
  - Blood potassium increased [Unknown]
  - Abdominal pain upper [Recovered/Resolved]
  - Condition aggravated [Not Recovered/Not Resolved]
  - Abdominal distension [Recovered/Resolved]
  - Flatulence [Not Recovered/Not Resolved]
  - Blood sodium decreased [Unknown]
  - Unevaluable event [Unknown]
  - Therapeutic product effect incomplete [Unknown]

NARRATIVE: CASE EVENT DATE: 20250101
